FAERS Safety Report 5037985-9 (Version None)
Quarter: 2006Q2

REPORT INFORMATION
  Report Type: 
  Country: None (occurrence: None)
  Receive Date: 20060616
  Receipt Date: 20050513
  Transmission Date: 20061013
  Serious: Yes (Other)
  Sender: FDA-Public Use
  Company Number: NUBN20050012

PATIENT
  Sex: Male

DRUGS (2)
  1. NUBAIN [Suspect]
     Dates: start: 20010101
  2. DIANOBOL [Suspect]

REACTIONS (1)
  - DRUG ABUSER [None]
